FAERS Safety Report 10866402 (Version 1)
Quarter: 2015Q1

REPORT INFORMATION
  Report Type: Spontaneous
  Country: US (occurrence: None)
  Receive Date: 20150220
  Receipt Date: 20150220
  Transmission Date: 20150721
  Serious: Yes (Hospitalization)
  Sender: FDA-Public Use
  Company Number: USW201412-000296

PATIENT
  Age: 72 Year
  Sex: Male
  Weight: 81.64 kg

DRUGS (6)
  1. APOKYN [Suspect]
     Active Substance: APOMORPHINE HYDROCHLORIDE
     Indication: PARKINSON^S DISEASE
     Dosage: 0.2 ML, ONCE, ABDOMEN, SUBCUTANEOUS
     Route: 058
     Dates: start: 20141209, end: 20141209
  2. AMANTADINE [Concomitant]
     Active Substance: AMANTADINE
  3. NEUPRO [Suspect]
     Active Substance: ROTIGOTINE
     Indication: PARKINSON^S DISEASE
  4. MEBEVERINE [Concomitant]
     Active Substance: MEBEVERINE
  5. FLOMAX [Concomitant]
     Active Substance: TAMSULOSIN HYDROCHLORIDE
  6. LIPITOR [Concomitant]
     Active Substance: ATORVASTATIN CALCIUM

REACTIONS (9)
  - Somnolence [None]
  - Nausea [None]
  - Dysstasia [None]
  - Asthenia [None]
  - Bronchitis [None]
  - Pneumonia [None]
  - Dyskinesia [None]
  - Myocardial infarction [None]
  - Malaise [None]

NARRATIVE: CASE EVENT DATE: 20141216
